FAERS Safety Report 5754037-0 (Version None)
Quarter: 2008Q2

REPORT INFORMATION
  Report Type: 
  Country: None (occurrence: None)
  Receive Date: 20080530
  Receipt Date: 20080520
  Transmission Date: 20081010
  Serious: Yes (Other)
  Sender: FDA-Public Use
  Company Number: PHMT2008CA00504

PATIENT
  Age: 84 Year
  Sex: Female

DRUGS (14)
  1. LESCOL XL [Suspect]
     Indication: BLOOD CHOLESTEROL INCREASED
     Dosage: 80 MG, QD
     Route: 048
     Dates: start: 20030625
  2. LESCOL XL [Suspect]
     Dosage: 20 MG, QD
  3. LESCOL XL [Suspect]
     Dosage: 40 MG, QD
     Dates: start: 20080212
  4. TOLBUTAMIDE [Concomitant]
     Dosage: 250 MG, QD
     Route: 048
  5. CALCIUM D [Concomitant]
     Dosage: 500/100
  6. SYNTHROID [Concomitant]
     Dosage: 0.088 UNK, UNK
  7. NEXIUM [Concomitant]
     Dosage: 40 MG, UNK
  8. CORDARONE [Concomitant]
     Dosage: 200 MG, UNK
  9. ATACANOL [Concomitant]
     Dosage: 8 MG, UNK
  10. NORVASC [Concomitant]
     Dosage: 5 MG, UNK
  11. FUROSEMIDE [Concomitant]
     Dosage: 40 MG, UNK
  12. COUMADIN [Concomitant]
     Dosage: 1 MG, UNK
  13. VALIUM [Concomitant]
     Dosage: 5 MG, UNK
  14. VITAMIN B-12 [Concomitant]

REACTIONS (2)
  - CREATININE RENAL CLEARANCE DECREASED [None]
  - RENAL FAILURE [None]
